FAERS Safety Report 8757784 (Version 3)
Quarter: 2012Q4

REPORT INFORMATION
  Report Type: Report from Study
  Country: CA (occurrence: CA)
  Receive Date: 20120828
  Receipt Date: 20121221
  Transmission Date: 20130627
  Serious: Yes (Other)
  Sender: FDA-Public Use
  Company Number: PHHY2012CA072011

PATIENT
  Age: 60 Year
  Sex: Female
  Weight: 68 kg

DRUGS (20)
  1. CLOZARIL [Suspect]
     Indication: SCHIZOAFFECTIVE DISORDER
     Route: 048
     Dates: start: 20120319
  2. CLOZARIL [Suspect]
     Dosage: 250 mg,
     Route: 048
     Dates: start: 20120321
  3. CLOZARIL [Suspect]
     Dosage: 2 pills (25mg) QHS + 1 pill (100mg) QHS
     Route: 048
     Dates: start: 20120503, end: 20120509
  4. CLOZARIL [Suspect]
     Dosage: 3 pills (25mg) QHS + 1 pill (100mg) QHS
     Route: 048
     Dates: start: 20120516, end: 20120523
  5. CLOZARIL [Suspect]
     Dosage: 2 pills (100mg) QHS
     Route: 048
     Dates: start: 20120524, end: 20120607
  6. CLOZARIL [Suspect]
     Dosage: 1 pill (25mg) QHS + 2 pills (100mg) QHS
     Route: 048
     Dates: start: 20120613
  7. CLOZARIL [Suspect]
     Dosage: 2 pills (25mg) QHS + 2 pills (100mg) QHS
     Route: 048
     Dates: start: 20120717
  8. CLOZARIL [Suspect]
     Dosage: 200 mg, UNK
  9. ZOPICLONE [Concomitant]
     Indication: INSOMNIA
     Dosage: 0.5 pill only if insomnia
     Dates: start: 20120418, end: 20120426
  10. ZOPICLONE [Concomitant]
     Dosage: 1 pill once a day QHS
     Dates: start: 20120516, end: 20120620
  11. ZOPICLONE [Concomitant]
     Dosage: 0.5 pill once a day half hpur before going to bed
     Dates: start: 20120621
  12. VITAMIN D [Concomitant]
     Dosage: 2 capsules (400IU) once a day at lunch
     Dates: start: 20120420
  13. OLANZAPINE [Concomitant]
     Indication: ANXIETY
     Dosage: 0.5 to 1 pill (5mg) if needed
     Dates: start: 20120418, end: 20120420
  14. OLANZAPINE [Concomitant]
     Dosage: 2 pills (7.5mg) before bed
     Dates: start: 20120503, end: 20120620
  15. OLANZAPINE [Concomitant]
     Dosage: 1 pill (10mg) before bed once a day
     Dates: start: 20120625, end: 20120708
  16. OLANZAPINE [Concomitant]
     Dosage: 1 pill (5mg) before bed once a day
     Dates: start: 20120709
  17. IRBESARTAN [Concomitant]
     Dosage: 75 mg, QD
     Dates: start: 20120420
  18. HYDROCHLOROTHIAZIDE [Concomitant]
     Dosage: 12.5 mg, QD
     Dates: start: 20120420
  19. ATORVASTATIN CALCIUM [Concomitant]
     Dosage: 10 mg, QD
     Dates: start: 20120420
  20. ATROPINE [Concomitant]
     Dosage: 1 or 2 drops under tongue Q12H
     Dates: start: 20120621

REACTIONS (15)
  - Fall [Unknown]
  - Dyspnoea [Unknown]
  - Hallucination, auditory [Recovered/Resolved]
  - Muscle spasms [Not Recovered/Not Resolved]
  - Myoclonus [Unknown]
  - Malaise [Unknown]
  - Insomnia [Unknown]
  - Anxiety [Recovering/Resolving]
  - Somnolence [Unknown]
  - Constipation [Recovering/Resolving]
  - Salivary hypersecretion [Not Recovered/Not Resolved]
  - Dizziness [Unknown]
  - Akathisia [Unknown]
  - Weight increased [Unknown]
  - Muscular weakness [Unknown]
